FAERS Safety Report 15417878 (Version 1)
Quarter: 2018Q3

REPORT INFORMATION
  Report Type: Spontaneous
  Country: US (occurrence: US)
  Receive Date: 20180924
  Receipt Date: 20180924
  Transmission Date: 20181010
  Serious: Yes (Other)
  Sender: FDA-Public Use
  Company Number: US-ENDO PHARMACEUTICALS INC-2018-041322

PATIENT
  Sex: Male

DRUGS (1)
  1. AVEED [Suspect]
     Active Substance: TESTOSTERONE UNDECANOATE
     Indication: ANDROGEN REPLACEMENT THERAPY
     Dosage: UNK UNKNOWN, (ON?LABEL, TWO INJECTIONS)
     Route: 065

REACTIONS (2)
  - Vascular occlusion [Unknown]
  - Vascular graft [Unknown]

NARRATIVE: CASE EVENT DATE: 2018
